FAERS Safety Report 6126156-0 (Version None)
Quarter: 2009Q1

REPORT INFORMATION
  Report Type: 
  Country: None (occurrence: None)
  Receive Date: 20090317
  Receipt Date: 20090302
  Transmission Date: 20090719
  Serious: Yes (Hospitalization, Other)
  Sender: FDA-Public Use
  Company Number: TPH-00072

PATIENT
  Age: 32 Year
  Sex: Female

DRUGS (1)
  1. TRIQUILAR [Suspect]
     Indication: ORAL CONTRACEPTION
     Dosage: ORAL
     Route: 048
     Dates: start: 20000101, end: 20080701

REACTIONS (11)
  - BLOOD PRESSURE INCREASED [None]
  - CAESAREAN SECTION [None]
  - COMPLICATION OF PREGNANCY [None]
  - DRUG EXPOSURE DURING PREGNANCY [None]
  - HIGH RISK PREGNANCY [None]
  - INAPPROPRIATE SCHEDULE OF DRUG ADMINISTRATION [None]
  - PREGNANCY ON ORAL CONTRACEPTIVE [None]
  - PREMATURE LABOUR [None]
  - SWELLING [None]
  - TWIN PREGNANCY [None]
  - WEIGHT DECREASED [None]
